FAERS Safety Report 24741547 (Version 2)
Quarter: 2025Q1

REPORT INFORMATION
  Report Type: Report from Study
  Country: US (occurrence: US)
  Receive Date: 20241217
  Receipt Date: 20250131
  Transmission Date: 20250409
  Serious: Yes (Hospitalization)
  Sender: ROCHE
  Company Number: US-ROCHE-10000155122

PATIENT
  Age: 57 Year
  Sex: Male

DRUGS (4)
  1. OCRELIZUMAB [Suspect]
     Active Substance: OCRELIZUMAB
     Indication: Multiple sclerosis
     Route: 040
     Dates: start: 20190107
  2. OCRELIZUMAB [Suspect]
     Active Substance: OCRELIZUMAB
     Route: 040
     Dates: start: 20240708
  3. TYLENOL [Concomitant]
     Active Substance: ACETAMINOPHEN
     Route: 048
  4. Bendaryl [Concomitant]

REACTIONS (5)
  - Infection [Unknown]
  - Asthenia [Unknown]
  - Constipation [Unknown]
  - Urinary tract infection [Unknown]
  - Pseudomonas infection [Unknown]
